FAERS Safety Report 22595482 (Version 2)
Quarter: 2023Q2

REPORT INFORMATION
  Report Type: Spontaneous
  Country: US (occurrence: US)
  Receive Date: 20230613
  Receipt Date: 20230627
  Transmission Date: 20230722
  Serious: No
  Sender: FDA-Public Use
  Company Number: US-PFIZER INC-202300065030

PATIENT
  Age: 70 Year
  Sex: Female
  Weight: 58.97 kg

DRUGS (3)
  1. DEPO-ESTRADIOL [Suspect]
     Active Substance: ESTRADIOL CYPIONATE
     Indication: Hormone replacement therapy
     Dosage: 0.8 MG, MONTHLY
  2. DEPO-ESTRADIOL [Suspect]
     Active Substance: ESTRADIOL CYPIONATE
     Indication: Hysterectomy
     Dosage: 0.9 MG, MONTHLY
     Dates: start: 1992, end: 202301
  3. TESTOSTERONE [Concomitant]
     Active Substance: TESTOSTERONE
     Indication: Breast tenderness
     Dosage: 0.2 MG

REACTIONS (4)
  - Expired product administered [Unknown]
  - Off label use [Unknown]
  - Intentional product misuse [Unknown]
  - Hot flush [Unknown]
